FAERS Safety Report 4524918-4 (Version None)
Quarter: 2004Q4

REPORT INFORMATION
  Report Type: 
  Country: None (occurrence: None)
  Receive Date: 20041117
  Receipt Date: 20030501
  Transmission Date: 20050328
  Serious: Yes (Other)
  Sender: FDA-Public Use
  Company Number: C2003-1134.01

PATIENT
  Age: 42 Year
  Sex: Female

DRUGS (5)
  1. CLOZAPINE [Suspect]
     Indication: SCHIZOPHRENIA
     Dosage: 300 Q AM, 400 Q PRN, ORAL
     Route: 048
     Dates: end: 20030501
  2. CLOZAPINE [Suspect]
     Indication: SCHIZOPHRENIA
     Dosage: 300 Q AM, 400 Q PRN, ORAL
     Route: 048
     Dates: start: 20030502
  3. MACROBID [Suspect]
     Indication: URINARY TRACT INFECTION
     Dosage: 100MG, QD, ORAL
     Route: 048
  4. NITROFURANTOIN [Concomitant]
  5. PHENOBARBITAL TAB [Concomitant]

REACTIONS (2)
  - DRUG INTERACTION [None]
  - LEUKOPENIA [None]
